FAERS Safety Report 14759052 (Version 1)
Quarter: 2018Q2

REPORT INFORMATION
  Report Type: Spontaneous
  Country: US (occurrence: US)
  Receive Date: 20180413
  Receipt Date: 20180413
  Transmission Date: 20180711
  Serious: No
  Sender: FDA-Public Use
  Company Number: US-UNITED THERAPEUTICS-UNT-2017-015136

PATIENT
  Age: 71 Year
  Sex: Female
  Weight: 74.83 kg

DRUGS (7)
  1. LETAIRIS [Suspect]
     Active Substance: AMBRISENTAN
     Indication: PULMONARY ARTERIAL HYPERTENSION
     Dosage: 5 MG, QD
     Route: 065
     Dates: start: 20171009
  2. TYVASO [Suspect]
     Active Substance: TREPROSTINIL
     Dosage: 12 ?G
     Dates: start: 2017
  3. TYVASO [Suspect]
     Active Substance: TREPROSTINIL
     Dosage: 18 ?G
     Dates: start: 20171102
  4. ADEMPAS [Concomitant]
     Active Substance: RIOCIGUAT
     Indication: PRODUCT USED FOR UNKNOWN INDICATION
     Route: 065
  5. TYVASO [Suspect]
     Active Substance: TREPROSTINIL
     Indication: PULMONARY ARTERIAL HYPERTENSION
     Dosage: 18-54 MICROGRAMS, QID
     Dates: start: 20171017
  6. TYVASO [Suspect]
     Active Substance: TREPROSTINIL
     Indication: PULMONARY HYPERTENSION
     Dosage: UNK
  7. TYVASO [Suspect]
     Active Substance: TREPROSTINIL
     Dosage: UNK

REACTIONS (22)
  - Pain in jaw [Not Recovered/Not Resolved]
  - Cough [Not Recovered/Not Resolved]
  - Asthenia [Unknown]
  - Hypoacusis [Unknown]
  - Constipation [Unknown]
  - Abdominal discomfort [Unknown]
  - Dizziness [Unknown]
  - Vomiting [Recovered/Resolved]
  - Diarrhoea [Unknown]
  - Oesophageal stenosis [Unknown]
  - Musculoskeletal pain [Recovered/Resolved]
  - Headache [Not Recovered/Not Resolved]
  - Dysphagia [Unknown]
  - Flushing [Unknown]
  - Decreased appetite [Unknown]
  - Dyspnoea exertional [Unknown]
  - Abdominal pain upper [Recovered/Resolved]
  - Nausea [Not Recovered/Not Resolved]
  - Fall [Recovered/Resolved]
  - Loss of consciousness [Unknown]
  - Fatigue [Unknown]
  - Weight decreased [Not Recovered/Not Resolved]

NARRATIVE: CASE EVENT DATE: 2017
